FAERS Safety Report 7462710-1 (Version None)
Quarter: 2011Q2

REPORT INFORMATION
  Report Type: 
  Country: None (occurrence: None)
  Receive Date: 20110506
  Receipt Date: 20110428
  Transmission Date: 20111010
  Serious: Yes (Hospitalization)
  Sender: FDA-Public Use
  Company Number: US-SANOFI-AVENTIS-2011SA026587

PATIENT
  Age: 75 Year
  Sex: Female

DRUGS (12)
  1. ASPIRIN [Suspect]
     Dates: end: 20110401
  2. SPIRONOLACTONE [Concomitant]
  3. PRILOSEC [Concomitant]
  4. METOPROLOL SUCCINATE [Concomitant]
  5. PRAVASTATIN [Concomitant]
  6. PLAVIX [Suspect]
     Route: 065
     Dates: start: 20080101, end: 20110401
  7. ENALAPRIL [Concomitant]
  8. PROTONIX [Concomitant]
  9. ADVAIR DISKUS 100/50 [Concomitant]
  10. CHLORHEXIDINE [Concomitant]
  11. PLAVIX [Suspect]
     Indication: STENT PLACEMENT
     Route: 065
     Dates: start: 20080101, end: 20110401
  12. MAALOX [Concomitant]

REACTIONS (4)
  - DRUG INTERACTION [None]
  - RED BLOOD CELL COUNT DECREASED [None]
  - DYSPHAGIA [None]
  - ASTHMA [None]
